FAERS Safety Report 8415120-4 (Version None)
Quarter: 2012Q2

REPORT INFORMATION
  Report Type: 
  Country: None (occurrence: None)
  Receive Date: 20120606
  Receipt Date: 20120530
  Transmission Date: 20120825
  Serious: Yes (Hospitalization, Other)
  Sender: FDA-Public Use
  Company Number: US-PFIZER INC-2012132495

PATIENT
  Sex: Female

DRUGS (18)
  1. SULFAMETHOXAZOLE AND TRIMETHOPRIM [Concomitant]
     Dosage: ONE TABLET TWICE DAILY
     Route: 048
     Dates: start: 20101006, end: 20101008
  2. ONDANSETRON [Concomitant]
     Indication: VOMITING
  3. VANCOMYCIN HYCHLORIDE [Suspect]
     Indication: ANTIBIOTIC PROPHYLAXIS
     Dosage: 01 G, ONE DOSE OVER 1 HR, POST-OPERATIVELY 1GM 1 DOSE OVER 1 HR AFTER 12 HRS OF PRE-OPERATIVE DOSE
     Route: 042
     Dates: start: 20101004, end: 20101008
  4. ONDANSETRON [Concomitant]
     Indication: NAUSEA
     Dosage: 02 ML, 2X/DAY, AS NEEDED
     Route: 042
     Dates: start: 20101004, end: 20101008
  5. CEFAZOLIN [Concomitant]
     Dosage: 01 G, 2X/DAY
     Route: 042
     Dates: start: 20101004
  6. LACTATED RINGER'S [Concomitant]
     Dosage: 1000 ML, UNK
     Route: 042
     Dates: start: 20101004
  7. ACETAMINOPHEN [Concomitant]
     Dosage: 650 MG, EVERY 4 HRS, AS NEEDED
     Route: 054
     Dates: start: 20101004, end: 20101008
  8. CEFOXITIN [Concomitant]
     Dosage: 2 G, 1X/DAY
     Route: 042
     Dates: start: 20101004
  9. CEFUROXIME [Concomitant]
     Dosage: 3 G, 3X/DAY
     Route: 042
     Dates: start: 20101004
  10. ZOLPIDEM [Concomitant]
     Indication: SLEEP DISORDER
     Dosage: 5 MG, 1X/DAY, AT BED TIME AS NEEDED
     Route: 048
     Dates: start: 20101004, end: 20101008
  11. CIPROFLOXACIN [Concomitant]
     Dosage: 400 MG, 2X/DAY
     Route: 042
     Dates: start: 20101004
  12. METRONIDAZOLE [Concomitant]
     Dosage: 500 MG, 2X/DAY
     Route: 042
     Dates: start: 20101004
  13. ONDANSETRON [Concomitant]
     Indication: NERVE BLOCK
  14. CLINDAMYCIN [Concomitant]
     Dosage: 900 MG, 2X/DAY
     Route: 042
     Dates: start: 20101004
  15. NAROPIN [Concomitant]
     Indication: NERVE BLOCK
     Dosage: 200MG/100ML SOLUTION,
     Route: 042
     Dates: start: 20101004, end: 20101005
  16. ACETAMINOPHEN [Concomitant]
     Indication: BODY TEMPERATURE
     Dosage: 1300 MG, EVERY 4 HRS, AS NEEDED
     Route: 048
     Dates: start: 20101004, end: 20101008
  17. ACETAMINOPHEN AND HYDROCODONE BITARTRATE [Concomitant]
     Indication: PAIN
     Dosage: 325 MG, UNK
     Route: 048
     Dates: start: 20101004, end: 20101008
  18. ACETAMINOPHEN AND HYDROCODONE BITARTRATE [Concomitant]

REACTIONS (1)
  - STEVENS-JOHNSON SYNDROME [None]
